FAERS Safety Report 8486146-X (Version None)
Quarter: 2012Q3

REPORT INFORMATION
  Report Type: 
  Country: None (occurrence: None)
  Receive Date: 20120703
  Receipt Date: 20120618
  Transmission Date: 20120928
  Serious: Yes (Other)
  Sender: FDA-Public Use
  Company Number: US-GLAXOSMITHKLINE-A0981503A

PATIENT
  Age: 78 Year
  Sex: Female

DRUGS (1)
  1. NICOTINE [Suspect]
     Indication: SMOKING CESSATION THERAPY
     Route: 062
     Dates: end: 20120617

REACTIONS (11)
  - DELUSION [None]
  - HALLUCINATION [None]
  - BRADYCARDIA [None]
  - DELIRIUM [None]
  - DEMENTIA ALZHEIMER'S TYPE [None]
  - ABNORMAL BEHAVIOUR [None]
  - MENTAL STATUS CHANGES [None]
  - PARANOIA [None]
  - URINARY TRACT INFECTION [None]
  - TOBACCO POISONING [None]
  - CONFUSIONAL STATE [None]
